FAERS Safety Report 9608183 (Version 2)
Quarter: 2013Q4

REPORT INFORMATION
  Report Type: Spontaneous
  Country: US (occurrence: US)
  Receive Date: 20131009
  Receipt Date: 20131122
  Transmission Date: 20140711
  Serious: No
  Sender: FDA-Public Use
  Company Number: US-PFIZER INC-2013285620

PATIENT
  Age: 77 Year
  Sex: Female
  Weight: 68.03 kg

DRUGS (4)
  1. FLECTOR [Suspect]
     Indication: PAIN IN EXTREMITY
     Dosage: UNK
     Route: 061
     Dates: start: 201309, end: 20131001
  2. FLECTOR [Suspect]
     Indication: BACK PAIN
  3. FLECTOR [Suspect]
     Indication: NECK PAIN
  4. PROZAC [Concomitant]
     Indication: HYPERTENSION
     Dosage: UNK

REACTIONS (1)
  - Drug ineffective [Unknown]
